FAERS Safety Report 15508840 (Version 1)
Quarter: 2018Q4

REPORT INFORMATION
  Report Type: Spontaneous
  Country: US (occurrence: US)
  Receive Date: 20181016
  Receipt Date: 20181016
  Transmission Date: 20190205
  Serious: Yes (Other)
  Sender: FDA-Public Use
  Company Number: None

PATIENT
  Age: 49 Year
  Sex: Female
  Weight: 108 kg

DRUGS (1)
  1. LEVOTHYROXIN/LIOTHYRONINE 30 MG [Suspect]
     Active Substance: LEVOTHYROXINE\LIOTHYRONINE
     Indication: HYPOTHYROIDISM
     Dosage: ?          QUANTITY:30 TABLET(S);?
     Route: 048
     Dates: start: 20180101, end: 20180709

REACTIONS (7)
  - Product substitution [None]
  - Arthralgia [None]
  - Headache [None]
  - Product dispensing issue [None]
  - Palpitations [None]
  - Amenorrhoea [None]
  - Weight increased [None]

NARRATIVE: CASE EVENT DATE: 20180101
